FAERS Safety Report 10094993 (Version 2)
Quarter: 2014Q2

REPORT INFORMATION
  Report Type: Spontaneous
  Country: ES (occurrence: ES)
  Receive Date: 20140422
  Receipt Date: 20140429
  Transmission Date: 20141212
  Serious: Yes (Other)
  Sender: FDA-Public Use
  Company Number: ES-AMGEN-ESPSP2014027934

PATIENT
  Age: 66 Year
  Sex: Female

DRUGS (2)
  1. PROLIA [Suspect]
     Indication: PRODUCT USED FOR UNKNOWN INDICATION
     Dosage: UNK
     Route: 065
  2. NATECAL [Concomitant]

REACTIONS (6)
  - Cellulitis [Unknown]
  - Madarosis [Unknown]
  - Rash [Unknown]
  - Weight increased [Unknown]
  - Cheilitis [Unknown]
  - Urinary tract infection [Unknown]
